FAERS Safety Report 4358708-2 (Version None)
Quarter: 2004Q2

REPORT INFORMATION
  Report Type: 
  Country: None (occurrence: None)
  Receive Date: 20040517
  Receipt Date: 20040505
  Transmission Date: 20050107
  Serious: Yes (Hospitalization, Other)
  Sender: FDA-Public Use
  Company Number: PHBS2004US06169

PATIENT
  Age: 58 Year
  Sex: Female

DRUGS (3)
  1. CYCLOSPORINE [Suspect]
     Indication: RENAL TRANSPLANT
     Route: 065
     Dates: start: 19950101
  2. AZATHIOPRINE [Concomitant]
  3. PREDNISONE [Concomitant]
     Dosage: 5 MG/DAY

REACTIONS (17)
  - ABDOMINAL PAIN LOWER [None]
  - BACK PAIN [None]
  - CONSTIPATION [None]
  - DECUBITUS ULCER [None]
  - DIABETIC NEUROPATHY [None]
  - DIPLEGIA [None]
  - DYSURIA [None]
  - ENTEROCOCCAL INFECTION [None]
  - HYPOAESTHESIA [None]
  - IMPAIRED HEALING [None]
  - LEG AMPUTATION [None]
  - OSTEOMYELITIS [None]
  - PYREXIA [None]
  - SPINAL CORD COMPRESSION [None]
  - SPINAL OSTEOARTHRITIS [None]
  - URINARY INCONTINENCE [None]
  - WOUND INFECTION [None]
